FAERS Safety Report 9670235 (Version 2)
Quarter: 2013Q4

REPORT INFORMATION
  Report Type: Spontaneous
  Country: US (occurrence: None)
  Receive Date: 20131104
  Receipt Date: 20131105
  Transmission Date: 20140711
  Serious: Yes (Hospitalization, Other)
  Sender: FDA-Public Use
  Company Number: ACO_39220_2013

PATIENT
  Sex: Male
  Weight: 122.4 kg

DRUGS (5)
  1. AMPYRA (DALFAMPRIDINE)TABLET, 10 MG [Suspect]
     Indication: GAIT DISTURBANCE
     Route: 048
  2. GLUCHPHAGE (METFORMIN HYDROCHLORIDE) [Concomitant]
  3. LIPITOR (ATORVASTATIN CALCIUM) [Concomitant]
  4. SPIRONOLACTONE (SPIRONOLACTONE) [Concomitant]
  5. LISINOPRIL (LISINOPRIL) [Concomitant]

REACTIONS (8)
  - Convulsion [None]
  - Alcohol detoxification [None]
  - Gait disturbance [None]
  - Drug ineffective [None]
  - Joint injury [None]
  - Tongue injury [None]
  - Swelling [None]
  - Swollen tongue [None]
